FAERS Safety Report 6060737-8 (Version None)
Quarter: 2009Q1

REPORT INFORMATION
  Report Type: 
  Country: None (occurrence: None)
  Receive Date: 20090130
  Receipt Date: 20090130
  Transmission Date: 20090719
  Serious: No
  Sender: FDA-Public Use
  Company Number: None

PATIENT
  Sex: Female
  Weight: 68.0396 kg

DRUGS (2)
  1. LEVOTHYROXINE SODIUM [Suspect]
     Indication: HYPOTHYROIDISM
     Dosage: 0.100 MG 1 TIME A DAY
     Dates: start: 20081212
  2. SYNTHROID [Suspect]

REACTIONS (5)
  - DRUG INTOLERANCE [None]
  - HEADACHE [None]
  - PRODUCT QUALITY ISSUE [None]
  - RASH PRURITIC [None]
  - VOMITING [None]
